FAERS Safety Report 11290097 (Version 1)
Quarter: 2015Q3

REPORT INFORMATION
  Report Type: Spontaneous
  Country: US (occurrence: US)
  Receive Date: 20150721
  Receipt Date: 20150721
  Transmission Date: 20151125
  Serious: Yes (Hospitalization)
  Sender: FDA-Public Use
  Company Number: US-JNJFOC-20150708487

PATIENT
  Age: 60 Year
  Sex: Male
  Weight: 81.65 kg

DRUGS (6)
  1. METFORMIN [Concomitant]
     Active Substance: METFORMIN HYDROCHLORIDE
     Indication: DIABETES MELLITUS
     Dosage: STARTED 2-3 YEARS AGO
     Route: 065
  2. ATORVASTATIN CALCIUM. [Concomitant]
     Active Substance: ATORVASTATIN CALCIUM
     Indication: ANTICOAGULANT THERAPY
     Route: 065
     Dates: start: 201503
  3. CARVEDILOL. [Concomitant]
     Active Substance: CARVEDILOL
     Dosage: STARTED 2-3 YEARS AGO
     Route: 065
     Dates: start: 201503
  4. INVOKANA [Suspect]
     Active Substance: CANAGLIFLOZIN
     Indication: DIABETES MELLITUS
     Route: 048
     Dates: start: 2013
  5. LISINOPRIL. [Concomitant]
     Active Substance: LISINOPRIL
     Indication: DIABETES MELLITUS
     Dosage: STARTED 2-3 YEARS AGO
     Route: 065
  6. PLAVIX [Concomitant]
     Active Substance: CLOPIDOGREL BISULFATE
     Indication: CARDIAC DISORDER
     Dosage: STARTED 2-3 YEARS AGO
     Route: 065
     Dates: start: 201503

REACTIONS (4)
  - Eructation [Not Recovered/Not Resolved]
  - Abasia [Unknown]
  - Dyspepsia [Not Recovered/Not Resolved]
  - Arterial occlusive disease [Recovered/Resolved]

NARRATIVE: CASE EVENT DATE: 201503
